FAERS Safety Report 17954381 (Version 2)
Quarter: 2020Q3

REPORT INFORMATION
  Report Type: Spontaneous
  Country: FR (occurrence: FR)
  Receive Date: 20200629
  Receipt Date: 20200706
  Transmission Date: 20201103
  Serious: Yes (Death, Other)
  Sender: FDA-Public Use
  Company Number: FR-AUROBINDO-AUR-APL-2020-002190

PATIENT
  Age: 27 Year
  Sex: Male

DRUGS (11)
  1. PREDNISONE TABLET [Suspect]
     Active Substance: PREDNISONE
     Indication: CUTANEOUS T-CELL LYMPHOMA
     Dosage: UNK (FOUR CURES)
     Route: 065
  2. DEXAMETHASONE. [Suspect]
     Active Substance: DEXAMETHASONE
     Indication: CUTANEOUS T-CELL LYMPHOMA
     Dosage: UNK
     Route: 065
  3. OXALIPLATIN. [Suspect]
     Active Substance: OXALIPLATIN
     Indication: CUTANEOUS T-CELL LYMPHOMA
     Dosage: UNK
     Route: 065
  4. CYCLOPHOSPHAMIDE. [Suspect]
     Active Substance: CYCLOPHOSPHAMIDE
     Indication: CUTANEOUS T-CELL LYMPHOMA
     Dosage: UNK (FOUR CURES)
     Route: 065
  5. ETOPOSIDE. [Suspect]
     Active Substance: ETOPOSIDE
     Indication: CUTANEOUS T-CELL LYMPHOMA
     Dosage: UNK (FOUR CURES )
     Route: 065
  6. BRENTUXIMAB [Suspect]
     Active Substance: BRENTUXIMAB VEDOTIN
     Indication: CUTANEOUS T-CELL LYMPHOMA
     Dosage: UNK
     Route: 065
  7. DOXORUBICIN [Suspect]
     Active Substance: DOXORUBICIN
     Indication: CUTANEOUS T-CELL LYMPHOMA
     Dosage: UNK (FOUR CURES)
     Route: 065
  8. CYTARABINE. [Suspect]
     Active Substance: CYTARABINE
     Indication: CUTANEOUS T-CELL LYMPHOMA
     Dosage: UNK
     Route: 065
  9. VINCRISTINE SULFATE. [Suspect]
     Active Substance: VINCRISTINE SULFATE
     Indication: CUTANEOUS T-CELL LYMPHOMA
     Dosage: UNK (FOUR CURES)
     Route: 065
  10. CLOFARABINE. [Suspect]
     Active Substance: CLOFARABINE
     Indication: CUTANEOUS T-CELL LYMPHOMA
     Dosage: UNK
     Route: 065
  11. ENDOXAN [Suspect]
     Active Substance: CYCLOPHOSPHAMIDE
     Indication: CUTANEOUS T-CELL LYMPHOMA
     Dosage: UNK
     Route: 065

REACTIONS (1)
  - Therapeutic product effect incomplete [Fatal]
